FAERS Safety Report 24834267 (Version 1)
Quarter: 2025Q1

REPORT INFORMATION
  Report Type: Spontaneous
  Country: US (occurrence: None)
  Receive Date: 20250110
  Receipt Date: 20250110
  Transmission Date: 20250408
  Serious: No
  Sender: FDA-CTU
  Company Number: None

PATIENT
  Age: 55 Year
  Sex: Female
  Weight: 77 kg

DRUGS (1)
  1. LEVETIRACETAM [Suspect]
     Active Substance: LEVETIRACETAM
     Indication: Seizure
     Dosage: FREQUENCY : TWICE A DAY;?
     Route: 048
     Dates: start: 20240113

REACTIONS (4)
  - Aggression [None]
  - Agitation [None]
  - Delirium [None]
  - Delusion [None]

NARRATIVE: CASE EVENT DATE: 20240819
